FAERS Safety Report 16902509 (Version 1)
Quarter: 2019Q4

REPORT INFORMATION
  Report Type: Spontaneous
  Country: FR (occurrence: FR)
  Receive Date: 20191010
  Receipt Date: 20191010
  Transmission Date: 20200122
  Serious: Yes (Life-Threatening)
  Sender: FDA-Public Use
  Company Number: FR-PFIZER INC-2019435774

PATIENT
  Age: 31 Year
  Sex: Female
  Weight: 62 kg

DRUGS (4)
  1. PROPOFOL. [Suspect]
     Active Substance: PROPOFOL
     Indication: INDUCTION OF ANAESTHESIA
     Route: 042
     Dates: start: 20190904, end: 20190904
  2. SUFENTANIL MYLAN [Suspect]
     Active Substance: SUFENTANIL
     Indication: INDUCTION OF ANAESTHESIA
     Route: 042
     Dates: start: 20190904, end: 20190904
  3. ATRACURIUM BESILATE [Suspect]
     Active Substance: ATRACURIUM BESYLATE
     Indication: INDUCTION OF ANAESTHESIA
     Route: 042
     Dates: start: 20190904, end: 20190904
  4. BLEU PATENTE V [Suspect]
     Active Substance: PATENT BLUE V
     Indication: BIOPSY LYMPH GLAND
     Dosage: 1 DF IN ONE HOUR
     Route: 058
     Dates: start: 20190904, end: 20190904

REACTIONS (2)
  - Stress cardiomyopathy [Recovered/Resolved]
  - Anaphylactic shock [Recovered/Resolved]

NARRATIVE: CASE EVENT DATE: 20190904
